FAERS Safety Report 21480616 (Version 1)
Quarter: 2022Q4

REPORT INFORMATION
  Report Type: Spontaneous
  Country: US (occurrence: US)
  Receive Date: 20221019
  Receipt Date: 20221019
  Transmission Date: 20230113
  Serious: Yes (Other)
  Sender: FDA-Public Use
  Company Number: US-MYLANLABS-2022M1114588

PATIENT
  Sex: Female
  Weight: 61.2 kg

DRUGS (1)
  1. ZOLOFT [Suspect]
     Active Substance: SERTRALINE HYDROCHLORIDE
     Indication: Anxiety
     Dosage: 200 MILLIGRAM, HS (BEFORE BED TIME)
     Route: 065
     Dates: start: 2018

REACTIONS (8)
  - Loss of consciousness [Unknown]
  - Night sweats [Unknown]
  - Anxiety [Unknown]
  - Ophthalmic migraine [Unknown]
  - Dizziness [Unknown]
  - Headache [Unknown]
  - Nausea [Unknown]
  - Product dose omission issue [Unknown]

NARRATIVE: CASE EVENT DATE: 20220101
